FAERS Safety Report 9882034 (Version 2)
Quarter: 2014Q2

REPORT INFORMATION
  Report Type: Spontaneous
  Country: US (occurrence: US)
  Receive Date: 20140207
  Receipt Date: 20140525
  Transmission Date: 20141212
  Serious: No
  Sender: FDA-Public Use
  Company Number: PHEH2014US002450

PATIENT
  Sex: Female

DRUGS (8)
  1. TASIGNA [Suspect]
     Dosage: 200 MG, DAILY
     Dates: start: 20100731
  2. TASIGNA [Suspect]
     Dosage: UNK UKN, UNK
  3. MEDROXYPROGESTERON [Concomitant]
     Dosage: UNK UKN, UNK
  4. BACLFEN [Concomitant]
     Dosage: UNK UKN, UNK
  5. GABAPENTIN [Concomitant]
     Dosage: UNK UKN, UNK
  6. LEVOTHYROXINE [Concomitant]
     Dosage: UNK UKN, UNK
  7. AMBIEN [Concomitant]
     Dosage: UNK UKN, UNK
  8. LORATADIN [Concomitant]
     Dosage: UNK UKN, UNK

REACTIONS (1)
  - Dizziness [Unknown]
